APPROVED DRUG PRODUCT: AKEEGA
Active Ingredient: ABIRATERONE ACETATE; NIRAPARIB TOSYLATE
Strength: 500MG;EQ 100MG BASE
Dosage Form/Route: TABLET;ORAL
Application: N216793 | Product #002
Applicant: JANSSEN BIOTECH INC
Approved: Aug 11, 2023 | RLD: Yes | RS: Yes | Type: RX

PATENTS:
Patent 11986468 | Expires: Jul 28, 2037
Patent 11986469 | Expires: Jul 28, 2037
Patent 11992486 | Expires: Jul 28, 2037
Patent 12383543 | Expires: Jul 28, 2037
Patent 11986470 | Expires: Jul 28, 2037
Patent 11673877 | Expires: Mar 27, 2038
Patent 11992486 | Expires: Jul 28, 2037
Patent 11986469 | Expires: Jul 28, 2037
Patent 11986468 | Expires: Jul 28, 2037
Patent 8071579 | Expires: Aug 12, 2027
Patent 8143241 | Expires: Aug 12, 2027
Patent 8859562 | Expires: Aug 4, 2031
Patent 11207311 | Expires: Jul 28, 2037
Patent 12383543 | Expires: Jul 28, 2037
Patent 8143241 | Expires: Aug 12, 2027
Patent 8071579 | Expires: Aug 12, 2027
Patent 8859562 | Expires: Aug 4, 2031
Patent 11207311 | Expires: Jul 28, 2037
Patent 11673877 | Expires: Mar 27, 2038
Patent 8071623 | Expires: Mar 27, 2031
Patent 8436185 | Expires: Apr 24, 2029
Patent 11091459 | Expires: Mar 27, 2038

EXCLUSIVITY:
Code: I-980 | Date: Dec 12, 2028
Code: NP | Date: Aug 11, 2026